FAERS Safety Report 8077498-3 (Version None)
Quarter: 2012Q1

REPORT INFORMATION
  Report Type: 
  Country: None (occurrence: None)
  Receive Date: 20120127
  Receipt Date: 20120125
  Transmission Date: 20120608
  Serious: Yes (Death, Hospitalization)
  Sender: FDA-Public Use
  Company Number: BR-B.I. PHARMACEUTICALS,INC./RIDGEFIELD-2012-BR-00073BR

PATIENT
  Age: 76 Year
  Sex: Male

DRUGS (2)
  1. MEDICATIONS NOT FURTHER SPECIFIED [Concomitant]
  2. SPIRIVA RESPIMAT [Suspect]
     Indication: EMPHYSEMA
     Route: 055
     Dates: start: 20110901, end: 20111026

REACTIONS (1)
  - LUNG DISORDER [None]
